FAERS Safety Report 16972015 (Version 1)
Quarter: 2019Q4

REPORT INFORMATION
  Report Type: Spontaneous
  Country: US (occurrence: US)
  Receive Date: 20191029
  Receipt Date: 20191029
  Transmission Date: 20200122
  Serious: No
  Sender: FDA-Public Use
  Company Number: US-ELI_LILLY_AND_COMPANY-US201910011698

PATIENT
  Age: 50 Year
  Sex: Female

DRUGS (3)
  1. ZYPREXA [Suspect]
     Active Substance: OLANZAPINE
     Indication: MAJOR DEPRESSION
     Dosage: UNK, UNKNOWN
     Route: 065
  2. ZYPREXA [Suspect]
     Active Substance: OLANZAPINE
     Indication: HALLUCINATION, AUDITORY
  3. WELLBUTRIN [Concomitant]
     Active Substance: BUPROPION HYDROCHLORIDE
     Indication: PRODUCT USED FOR UNKNOWN INDICATION
     Dosage: 300 MG

REACTIONS (2)
  - Weight increased [Unknown]
  - Abnormal behaviour [Unknown]
